FAERS Safety Report 15973968 (Version 1)
Quarter: 2019Q1

REPORT INFORMATION
  Report Type: Spontaneous
  Country: FR (occurrence: FR)
  Receive Date: 20190217
  Receipt Date: 20190217
  Transmission Date: 20190418
  Serious: Yes (Hospitalization, Other)
  Sender: FDA-Public Use
  Company Number: FR-AMGEN-FRASP2018169647

PATIENT
  Age: 47 Year
  Sex: Male
  Weight: 72 kg

DRUGS (2)
  1. ENBREL [Suspect]
     Active Substance: ETANERCEPT
     Indication: AXIAL SPONDYLOARTHRITIS
     Dosage: 50 MG, UNK
     Route: 065
     Dates: start: 201706, end: 2018
  2. ENBREL [Suspect]
     Active Substance: ETANERCEPT
     Dosage: 50 MG, UNK
     Route: 058
     Dates: start: 20170610, end: 20180401

REACTIONS (2)
  - Sarcoidosis [Recovering/Resolving]
  - Peripheral venous disease [Recovering/Resolving]

NARRATIVE: CASE EVENT DATE: 20180301
